FAERS Safety Report 10061450 (Version 2)
Quarter: 2014Q2

REPORT INFORMATION
  Report Type: Spontaneous
  Country: JP (occurrence: JP)
  Receive Date: 20140407
  Receipt Date: 20140619
  Transmission Date: 20141212
  Serious: Yes (Hospitalization)
  Sender: FDA-Public Use
  Company Number: JP-JNJFOC-20140402035

PATIENT
  Age: 80 Year
  Sex: Male
  Weight: 63 kg

DRUGS (9)
  1. XARELTO [Suspect]
     Indication: CEREBROVASCULAR ACCIDENT PROPHYLAXIS
     Route: 048
     Dates: start: 20130903, end: 20140305
  2. XARELTO [Suspect]
     Indication: ATRIAL FIBRILLATION
     Route: 048
     Dates: start: 20130903, end: 20140305
  3. BLOPRESS [Concomitant]
     Indication: HYPERTENSION
     Route: 048
  4. MAINTATE [Concomitant]
     Indication: HYPERTENSION
     Route: 048
  5. NORVASC [Concomitant]
     Indication: HYPERTENSION
     Route: 048
  6. DIGOXIN [Concomitant]
     Indication: ATRIAL FIBRILLATION
     Route: 048
  7. VILDAGLIPTIN [Concomitant]
     Indication: DIABETES MELLITUS
     Route: 048
  8. GLUFAST [Concomitant]
     Indication: DIABETES MELLITUS
     Route: 048
  9. GLUCOBAY [Concomitant]
     Route: 048

REACTIONS (1)
  - Interstitial lung disease [Recovered/Resolved]
